FAERS Safety Report 20465757 (Version 2)
Quarter: 2022Q4

REPORT INFORMATION
  Report Type: Spontaneous
  Country: ZA (occurrence: ZA)
  Receive Date: 20220212
  Receipt Date: 20221107
  Transmission Date: 20230113
  Serious: Yes (Other)
  Sender: FDA-Public Use
  Company Number: ZA-PFIZER INC-2020442695

PATIENT
  Age: 14 Year
  Sex: Male

DRUGS (5)
  1. ENBREL [Suspect]
     Active Substance: ETANERCEPT
     Indication: Product used for unknown indication
     Dosage: 50 MG, WEEKLY
     Route: 058
     Dates: start: 20201106, end: 20210215
  2. ARAVA [Concomitant]
     Active Substance: LEFLUNOMIDE
     Dosage: 10 MILLIGRAM, QD
  3. CHLOROQUINE [Concomitant]
     Active Substance: CHLOROQUINE
     Dosage: 200 MG, DAILY
     Dates: start: 201807
  4. PREDNISONE [Concomitant]
     Active Substance: PREDNISONE
     Dosage: 10 MG, (5DAYS PER WEEKLY)
     Dates: start: 201807
  5. Stilpane [Concomitant]
     Dosage: UNK, (I-II 8 HRLY PRN)

REACTIONS (7)
  - Arthritis [Unknown]
  - Joint swelling [Unknown]
  - Pelvic pain [Unknown]
  - Nausea [Recovered/Resolved]
  - COVID-19 [Recovering/Resolving]
  - Therapy change [Unknown]
  - Gait disturbance [Unknown]

NARRATIVE: CASE EVENT DATE: 20201106
